FAERS Safety Report 9483769 (Version 2)
Quarter: 2013Q3

REPORT INFORMATION
  Report Type: Spontaneous
  Country: US (occurrence: US)
  Receive Date: 20130828
  Receipt Date: 20130828
  Transmission Date: 20140515
  Serious: Yes (Hospitalization)
  Sender: FDA-Public Use
  Company Number: US-AMGEN-KDL332603

PATIENT
  Age: 63 Year
  Sex: Female
  Weight: 74.9 kg

DRUGS (5)
  1. ENBREL [Suspect]
     Indication: RHEUMATOID ARTHRITIS
     Dosage: 50 MG, QWK
     Route: 058
     Dates: start: 20050830
  2. LEFLUNOMIDE [Concomitant]
     Dosage: 20 MG, QD
     Dates: start: 20040201
  3. FLUTICASONE PROPIONATE [Concomitant]
  4. GABAPENTIN [Concomitant]
     Dosage: 300 MG, UNK
  5. HYDROCODONE [Concomitant]

REACTIONS (2)
  - Staphylococcal sepsis [Unknown]
  - Osteomyelitis [Unknown]
